FAERS Safety Report 9119454 (Version 2)
Quarter: 2013Q1

REPORT INFORMATION
  Report Type: Spontaneous
  Country: US (occurrence: US)
  Receive Date: 20130207
  Receipt Date: 20130305
  Transmission Date: 20140127
  Serious: No
  Sender: FDA-Public Use
  Company Number: US-PFIZER INC-2013049151

PATIENT
  Age: 34 Year
  Sex: Female

DRUGS (1)
  1. DAYPRO [Suspect]
     Dosage: 600 MG, 1X/DAY
     Route: 048
     Dates: start: 20130125

REACTIONS (2)
  - Myalgia [Unknown]
  - Myositis [Unknown]
